FAERS Safety Report 5767843-3 (Version None)
Quarter: 2008Q2

REPORT INFORMATION
  Report Type: 
  Country: None (occurrence: None)
  Receive Date: 20080612
  Receipt Date: 20080606
  Transmission Date: 20081010
  Serious: Yes (Hospitalization)
  Sender: FDA-Public Use
  Company Number: GB-ASTRAZENECA-2008GB01060

PATIENT
  Age: 66 Year
  Sex: Male
  Weight: 70.8 kg

DRUGS (2)
  1. OMEPRAZOLE [Suspect]
     Indication: GASTROOESOPHAGEAL REFLUX DISEASE
     Dosage: 20 MG
     Route: 048
     Dates: start: 20070501, end: 20080515
  2. BETAHISTINE [Concomitant]
     Dosage: 16 MG
     Dates: start: 20080301, end: 20080516

REACTIONS (4)
  - CONVULSION [None]
  - DIZZINESS [None]
  - HYPOCALCAEMIA [None]
  - HYPONATRAEMIA [None]
